FAERS Safety Report 8969326 (Version 1)
Quarter: 2012Q4

REPORT INFORMATION
  Report Type: 
  Country: IT (occurrence: IT)
  Receive Date: 20121217
  Receipt Date: 20121217
  Transmission Date: 20130627
  Serious: Yes (Other)
  Sender: FDA-Public Use
  Company Number: PHHY2012IT114700

PATIENT

DRUGS (2)
  1. ARIPIPRAZOLE [Suspect]
     Indication: TOURETTE^S DISORDER
     Dosage: 7.5 mg, daily
  2. FLUOXETINE [Interacting]
     Indication: OBSESSIVE-COMPULSIVE DISORDER
     Dosage: 20 mg, daily

REACTIONS (8)
  - Oculogyric crisis [Recovered/Resolved]
  - Posture abnormal [Recovered/Resolved]
  - Slow response to stimuli [Recovered/Resolved]
  - Eye movement disorder [Recovered/Resolved]
  - Confusional state [Recovered/Resolved]
  - Somnolence [Recovered/Resolved]
  - Decreased activity [Recovered/Resolved]
  - Drug interaction [Unknown]
